FAERS Safety Report 19845854 (Version 1)
Quarter: 2021Q3

REPORT INFORMATION
  Report Type: Spontaneous
  Country: PL (occurrence: PL)
  Receive Date: 20210917
  Receipt Date: 20210917
  Transmission Date: 20211014
  Serious: Yes (Other)
  Sender: FDA-Public Use
  Company Number: PL-TEVA-2021-PL-1951985

PATIENT
  Age: 75 Year
  Sex: Male
  Weight: 83 kg

DRUGS (5)
  1. CETUXIMAB. [Suspect]
     Active Substance: CETUXIMAB
     Indication: RECTAL CANCER
     Dosage: 960MILLIGRAM
     Route: 042
     Dates: start: 20201222, end: 20201222
  2. 5?FLUOROURACIL ^EBEWE^ [Suspect]
     Active Substance: FLUOROURACIL
     Dosage: 2370MILLIGRAM
     Route: 041
     Dates: start: 20201222, end: 20201223
  3. LEUCOVORIN. [Suspect]
     Active Substance: LEUCOVORIN
     Indication: RECTAL CANCER
     Dosage: 384MILLIGRAM
     Route: 042
     Dates: start: 20201222, end: 20201223
  4. IRINOTECAN ACCORD [Suspect]
     Active Substance: IRINOTECAN
     Indication: RECTAL CANCER
     Dosage: 356MILLIGRAM
     Route: 042
     Dates: start: 20201222, end: 20201222
  5. 5?FLUOROURACIL ^EBEWE^ [Suspect]
     Active Substance: FLUOROURACIL
     Indication: RECTAL CANCER
     Dosage: 790MILLIGRAM
     Route: 040
     Dates: start: 20201222, end: 20201223

REACTIONS (1)
  - Neutropenia [Unknown]

NARRATIVE: CASE EVENT DATE: 20210105
